FAERS Safety Report 13536232 (Version 1)
Quarter: 2017Q2

REPORT INFORMATION
  Report Type: Spontaneous
  Country: US (occurrence: US)
  Receive Date: 20170511
  Receipt Date: 20170511
  Transmission Date: 20170830
  Serious: Yes (Other)
  Sender: FDA-Public Use
  Company Number: None

PATIENT
  Age: 53 Year
  Sex: Female
  Weight: 58.5 kg

DRUGS (4)
  1. PROBIOTIC [Concomitant]
     Active Substance: PROBIOTICS NOS
  2. MULTI VITAMIN [Concomitant]
     Active Substance: VITAMINS
  3. LEVOFLOXACIN. [Suspect]
     Active Substance: LEVOFLOXACIN
     Indication: URINARY TRACT INFECTION
     Dosage: ?          QUANTITY:10 TABLET(S);?
     Route: 048
     Dates: start: 20161020, end: 20161031
  4. FISHOIL [Concomitant]

REACTIONS (5)
  - Arthropathy [None]
  - Ligament disorder [None]
  - Muscle disorder [None]
  - Gastrointestinal disorder [None]
  - Feeling abnormal [None]

NARRATIVE: CASE EVENT DATE: 20161021
